FAERS Safety Report 23487313 (Version 1)
Quarter: 2024Q1

REPORT INFORMATION
  Report Type: Spontaneous
  Country: IN (occurrence: IN)
  Receive Date: 20240206
  Receipt Date: 20240206
  Transmission Date: 20240409
  Serious: Yes (Life-Threatening, Hospitalization, Other)
  Sender: FDA-Public Use
  Company Number: IN-SANDOZ-SDZ2024IN010889

PATIENT
  Sex: Male

DRUGS (5)
  1. CYCLOSPORINE [Suspect]
     Active Substance: CYCLOSPORINE
     Indication: Product used for unknown indication
     Dosage: UNK
     Route: 065
  2. TACROLIMUS [Suspect]
     Active Substance: TACROLIMUS
     Indication: Product used for unknown indication
     Dosage: 0.5 MG, BID
     Route: 065
  3. TACROLIMUS [Suspect]
     Active Substance: TACROLIMUS
     Dosage: 1.5 MG, BID DAY 1
     Route: 065
  4. TACROLIMUS [Suspect]
     Active Substance: TACROLIMUS
     Dosage: 5 MG/ML DAY 2
     Route: 065
  5. TACROLIMUS [Suspect]
     Active Substance: TACROLIMUS
     Dosage: 8 MG/ML DAY 3
     Route: 065

REACTIONS (8)
  - Embolic cerebral infarction [Unknown]
  - Coma [Unknown]
  - Ventricular tachycardia [Unknown]
  - Osmotic demyelination syndrome [Unknown]
  - Dysarthria [Unknown]
  - Tremor [Unknown]
  - Toxicity to various agents [Unknown]
  - Muscle strength abnormal [Unknown]
